FAERS Safety Report 15023070 (Version 1)
Quarter: 2018Q2

REPORT INFORMATION
  Report Type: Report from Study
  Country: None (occurrence: RO)
  Receive Date: 20180618
  Receipt Date: 20180618
  Transmission Date: 20180711
  Serious: Yes (Death, Hospitalization)
  Sender: FDA-Public Use
  Company Number: RO-ABBVIE-18P-135-2391514-00

PATIENT
  Age: 57 Year
  Sex: Male

DRUGS (4)
  1. EXVIERA [Suspect]
     Active Substance: DASABUVIR
     Indication: HEPATIC CIRRHOSIS
  2. VIEKIRAX [Suspect]
     Active Substance: OMBITASVIR\PARITAPREVIR\RITONAVIR
     Indication: HEPATIC CIRRHOSIS
  3. VIEKIRAX [Suspect]
     Active Substance: OMBITASVIR\PARITAPREVIR\RITONAVIR
     Indication: HEPATITIS C
     Route: 048
     Dates: start: 20171218, end: 20180311
  4. EXVIERA [Suspect]
     Active Substance: DASABUVIR
     Indication: HEPATITIS C
     Route: 048
     Dates: start: 20171218, end: 20180311

REACTIONS (1)
  - Cerebrovascular accident [Fatal]

NARRATIVE: CASE EVENT DATE: 20180603
